FAERS Safety Report 4528265-6 (Version None)
Quarter: 2004Q4

REPORT INFORMATION
  Report Type: 
  Country: None (occurrence: None)
  Receive Date: 20041130
  Receipt Date: 20040727
  Transmission Date: 20050328
  Serious: No
  Sender: FDA-Public Use
  Company Number: WAES 0407USA02424

PATIENT
  Sex: Female

DRUGS (3)
  1. ZETIA [Suspect]
     Dosage: PO
     Route: 048
  2. IMDUR [Concomitant]
  3. TIAZAC [Concomitant]

REACTIONS (2)
  - DIVERTICULUM [None]
  - HAEMORRHAGE [None]
